FAERS Safety Report 5836285-4 (Version None)
Quarter: 2008Q3

REPORT INFORMATION
  Report Type: 
  Country: None (occurrence: None)
  Receive Date: 20080730
  Receipt Date: 20080616
  Transmission Date: 20090109
  Serious: Yes (Other)
  Sender: FDA-Public Use
  Company Number: PBAR-7FNSF9

PATIENT

DRUGS (3)
  1. DURAPREP [Suspect]
     Indication: PREOPERATIVE CARE
     Dosage: TOPICAL SOLUTION; SINGLE APPLICATION
     Route: 061
  2. IOBAN [Concomitant]
  3. MEDICAL SCOPE (HEADLAMP) WITH XENON BULB [Concomitant]

REACTIONS (1)
  - THERMAL BURN [None]
